FAERS Safety Report 9903157 (Version 1)
Quarter: 2014Q1

REPORT INFORMATION
  Report Type: Report from Study
  Country: BR (occurrence: BR)
  Receive Date: 20140217
  Receipt Date: 20140217
  Transmission Date: 20141002
  Serious: Yes (Other)
  Sender: FDA-Public Use
  Company Number: PHHY2014BR018708

PATIENT
  Sex: Female
  Weight: 63 kg

DRUGS (8)
  1. DIOVAN HCT [Suspect]
     Indication: HYPERTENSION
     Dosage: 1 DF, QD (MORNING)
     Route: 048
     Dates: start: 2006
  2. DIOVAN HCT [Suspect]
     Indication: BLOOD PRESSURE INADEQUATELY CONTROLLED
  3. SIMVASTATIN [Concomitant]
     Indication: BLOOD TRIGLYCERIDES ABNORMAL
     Dosage: 40 MG, UNK
  4. SIMVASTATIN [Concomitant]
     Indication: BLOOD CHOLESTEROL ABNORMAL
  5. METFORMIN [Concomitant]
     Indication: BLOOD GLUCOSE ABNORMAL
     Dosage: 850 MG, UNK
  6. OMEPRAZOLE [Concomitant]
     Indication: ABDOMINAL DISCOMFORT
     Dosage: 20 MG, UNK
  7. NOVOLIN [Concomitant]
     Indication: BLOOD GLUCOSE ABNORMAL
     Dosage: UNK UKN, UNK
  8. CALCIUM [Concomitant]
     Indication: OSTEOPOROSIS
     Dosage: 500 UKN, UNK

REACTIONS (16)
  - Pulmonary haemorrhage [Unknown]
  - Nodule [Unknown]
  - Fall [Recovering/Resolving]
  - Syncope [Recovering/Resolving]
  - Blood glucose increased [Recovering/Resolving]
  - Head injury [Recovering/Resolving]
  - Spinal disorder [Recovering/Resolving]
  - Peripheral nerve lesion [Recovering/Resolving]
  - Musculoskeletal discomfort [Recovering/Resolving]
  - Screaming [Recovering/Resolving]
  - Pain [Recovering/Resolving]
  - Malaise [Recovering/Resolving]
  - Cold sweat [Recovering/Resolving]
  - Hypertension [Recovering/Resolving]
  - Pain in extremity [Recovering/Resolving]
  - Headache [Recovering/Resolving]
